FAERS Safety Report 23982844 (Version 1)
Quarter: 2024Q2

REPORT INFORMATION
  Report Type: Spontaneous
  Country: US (occurrence: None)
  Receive Date: 20240617
  Receipt Date: 20240617
  Transmission Date: 20240716
  Serious: No
  Sender: FDA-Public Use
  Company Number: None

PATIENT
  Age: 80 Year
  Sex: Female

DRUGS (1)
  1. MIEBO [Suspect]
     Active Substance: PERFLUOROHEXYLOCTANE
     Dosage: 1 GTT DROP 4 TIMES A DAY  ?
     Route: 047

REACTIONS (4)
  - Discomfort [None]
  - Dyspnoea [None]
  - Chest discomfort [None]
  - Feeling abnormal [None]

NARRATIVE: CASE EVENT DATE: 20240617
